FAERS Safety Report 5365513-7 (Version None)
Quarter: 2007Q2

REPORT INFORMATION
  Report Type: 
  Country: None (occurrence: None)
  Receive Date: 20070621
  Receipt Date: 20070620
  Transmission Date: 20071010
  Serious: Yes (Other)
  Sender: FDA-Public Use
  Company Number: A0653927A

PATIENT
  Age: 8 Year
  Sex: Female
  Weight: 17.2 kg

DRUGS (1)
  1. FLOLAN [Suspect]
     Indication: DRUG USE FOR UNKNOWN INDICATION
     Dosage: 28NGKM UNKNOWN
     Route: 042
     Dates: start: 20000901

REACTIONS (5)
  - CYANOSIS [None]
  - MEDICAL DEVICE COMPLICATION [None]
  - OXYGEN SATURATION DECREASED [None]
  - PHARMACEUTICAL PRODUCT COMPLAINT [None]
  - THERAPY CESSATION [None]
